FAERS Safety Report 25338654 (Version 1)
Quarter: 2025Q2

REPORT INFORMATION
  Report Type: Report from Study
  Country: US (occurrence: US)
  Receive Date: 20250520
  Receipt Date: 20250520
  Transmission Date: 20250717
  Serious: Yes (Other)
  Sender: MALLINCKRODT
  Company Number: US-MALLINCKRODT-MNK202501352

PATIENT
  Age: 45 Year
  Sex: Male

DRUGS (2)
  1. CORTICOTROPIN [Suspect]
     Active Substance: CORTICOTROPIN
     Indication: Proteinuria
     Route: 058
  2. DEVICE [Concomitant]
     Active Substance: DEVICE

REACTIONS (5)
  - IgA nephropathy [Not Recovered/Not Resolved]
  - Haemoglobin abnormal [Unknown]
  - White blood cell count increased [Unknown]
  - Injection site haemorrhage [Unknown]
  - Injection site pruritus [Recovered/Resolved]
